FAERS Safety Report 22148706 (Version 1)
Quarter: 2023Q1

REPORT INFORMATION
  Report Type: Spontaneous
  Country: ES (occurrence: ES)
  Receive Date: 20230328
  Receipt Date: 20230328
  Transmission Date: 20230418
  Serious: Yes (Other)
  Sender: FDA-Public Use
  Company Number: None

PATIENT
  Age: 47 Year
  Sex: Male
  Weight: 70 kg

DRUGS (1)
  1. ELEXACAFTOR\IVACAFTOR\TEZACAFTOR [Suspect]
     Active Substance: ELEXACAFTOR\IVACAFTOR\TEZACAFTOR
     Indication: Cystic fibrosis
     Dosage: 75 MG/50 MG/100 MG, 2 TABLETS 12 HRS APART
     Route: 048
     Dates: start: 20220615

REACTIONS (2)
  - Hepatitis [Unknown]
  - Choluria [Recovered/Resolved]

NARRATIVE: CASE EVENT DATE: 20220619
